FAERS Safety Report 9291531 (Version 1)
Quarter: 2013Q2

REPORT INFORMATION
  Report Type: Spontaneous
  Country: PH (occurrence: PH)
  Receive Date: 20130515
  Receipt Date: 20130515
  Transmission Date: 20140414
  Serious: Yes (Death)
  Sender: FDA-Public Use
  Company Number: PH-009507513-1305PHL008365

PATIENT
  Sex: Male

DRUGS (1)
  1. FOSAVANCE [Suspect]
     Dosage: ONE TABLET ONCE A WEEK
     Route: 048
     Dates: end: 201304

REACTIONS (1)
  - Urinary tract infection [Fatal]
